FAERS Safety Report 9812741 (Version 1)
Quarter: 2014Q1

REPORT INFORMATION
  Report Type: Spontaneous
  Country: US (occurrence: US)
  Receive Date: 20140110
  Receipt Date: 20140110
  Transmission Date: 20141002
  Serious: Yes (Other)
  Sender: FDA-Public Use
  Company Number: USRB06167714

PATIENT
  Age: 16 Year
  Sex: Male

DRUGS (1)
  1. DELSYM ADULT GRAPE LIQUID [Suspect]
     Indication: EUPHORIC MOOD
     Dosage: INGESTED 2.5 BOTTLES OF THE PRODUCT
     Route: 048

REACTIONS (3)
  - Drug abuse [Not Recovered/Not Resolved]
  - Tremor [Not Recovered/Not Resolved]
  - Intentional overdose [Not Recovered/Not Resolved]
